FAERS Safety Report 7164296-8 (Version None)
Quarter: 2010Q4

REPORT INFORMATION
  Report Type: 
  Country: None (occurrence: None)
  Receive Date: 20101215
  Receipt Date: 20101202
  Transmission Date: 20110411
  Serious: Yes (Other)
  Sender: FDA-Public Use
  Company Number: PHHY2010BR82216

PATIENT
  Age: 60 Year
  Sex: Female
  Weight: 64 kg

DRUGS (5)
  1. DIOVAN HCT [Suspect]
     Indication: HYPERTENSION
     Dosage: 320/25 MG, ONE TABLET, DAILY
     Route: 048
  2. CHLOROQUINE PHOSPHATE [Concomitant]
     Dosage: 250 MG, UNK
  3. HYDROCHLOROTHIAZIDE [Concomitant]
     Dosage: 12.5 MG, UNK
  4. MELOXICAM [Concomitant]
     Dosage: 15 MG, UNK
  5. CIATIDINA [Concomitant]
     Dosage: 300 MG, ONE TABLET, DAILY
     Route: 048
     Dates: start: 20101201

REACTIONS (3)
  - ASTHENIA [None]
  - BURSITIS [None]
  - HYPERHIDROSIS [None]
